FAERS Safety Report 19571321 (Version 4)
Quarter: 2022Q3

REPORT INFORMATION
  Report Type: Spontaneous
  Country: None (occurrence: US)
  Receive Date: 20210715
  Receipt Date: 20220722
  Transmission Date: 20221027
  Serious: Yes (Other)
  Sender: FDA-Public Use
  Company Number: US-AMPHASTAR PHARMACEUTICALS, INC.-2113899

PATIENT
  Age: 55 Year
  Sex: Female
  Weight: 79.091 kg

DRUGS (2)
  1. ENOXAPARIN SODIUM [Suspect]
     Active Substance: ENOXAPARIN SODIUM
     Indication: Thrombosis
     Route: 058
  2. DEVICE [Suspect]
     Active Substance: DEVICE

REACTIONS (6)
  - Foreign body in skin or subcutaneous tissue [Unknown]
  - Removal of foreign body [Unknown]
  - Injection site inflammation [Unknown]
  - Injection site infection [Unknown]
  - Puncture site pain [Unknown]
  - Removal of foreign body [Recovering/Resolving]

NARRATIVE: CASE EVENT DATE: 20210626
